FAERS Safety Report 19407675 (Version 2)
Quarter: 2021Q3

REPORT INFORMATION
  Report Type: Report from Study
  Country: None (occurrence: FR)
  Receive Date: 20210611
  Receipt Date: 20210812
  Transmission Date: 20211014
  Serious: Yes (Hospitalization)
  Sender: FDA-Public Use
  Company Number: FR-ABBVIE-21P-056-3933435-00

PATIENT
  Age: 79 Year
  Sex: Male
  Weight: 68 kg

DRUGS (9)
  1. VENETOCLAX. [Suspect]
     Active Substance: VENETOCLAX
     Dosage: DAYS 1?14
     Route: 048
     Dates: start: 20210628
  2. TAMSULOSIN HYDROCHLORIDE. [Concomitant]
     Active Substance: TAMSULOSIN HYDROCHLORIDE
     Indication: BENIGN PROSTATIC HYPERPLASIA
     Route: 048
     Dates: start: 2000
  3. MOVICOL [Concomitant]
     Active Substance: POLYETHYLENE GLYCOL 3350\POTASSIUM CHLORIDE\SODIUM BICARBONATE\SODIUM CHLORIDE
     Indication: CONSTIPATION
     Route: 048
     Dates: start: 20210517
  4. ZARZIO [Concomitant]
     Active Substance: FILGRASTIM
     Indication: FEBRILE BONE MARROW APLASIA
     Route: 058
     Dates: start: 20210531, end: 20210602
  5. ZARZIO [Concomitant]
     Active Substance: FILGRASTIM
     Indication: APLASIA
     Route: 058
     Dates: start: 20210604
  6. AZACITIDINE. [Suspect]
     Active Substance: AZACITIDINE
     Indication: MYELODYSPLASTIC SYNDROME
     Dosage: 7 DAYS WITHIN DAYS 1?9 OF EACH CYCLE
     Route: 058
     Dates: start: 20210104, end: 20210519
  7. AZACITIDINE. [Suspect]
     Active Substance: AZACITIDINE
     Dosage: 7 DAYS WITHIN DAYS 1?9 OF EACH CYCLE
     Route: 058
     Dates: start: 20210628
  8. VENETOCLAX. [Suspect]
     Active Substance: VENETOCLAX
     Indication: MYELODYSPLASTIC SYNDROME
     Dosage: DAYS 1?14
     Route: 048
     Dates: start: 20210104, end: 20210117
  9. VENETOCLAX. [Suspect]
     Active Substance: VENETOCLAX
     Dosage: DAYS 1?14
     Route: 048
     Dates: start: 20210215, end: 20210523

REACTIONS (1)
  - Diverticulitis [Recovered/Resolved]

NARRATIVE: CASE EVENT DATE: 20210526
